FAERS Safety Report 23363713 (Version 1)
Quarter: 2024Q1

REPORT INFORMATION
  Report Type: Report from Study
  Country: US (occurrence: US)
  Receive Date: 20240103
  Receipt Date: 20240103
  Transmission Date: 20240410
  Serious: Yes (Hospitalization, Other)
  Sender: FDA-Public Use
  Company Number: US-ABBVIE-5563364

PATIENT
  Sex: Male

DRUGS (3)
  1. DUOPA [Suspect]
     Active Substance: CARBIDOPA\LEVODOPA
     Indication: Parkinson^s disease
     Dosage: CONTINUOUS DOSE: 3.5 ML/HR FORM STRENGTH- 4.63-20MG
     Route: 050
  2. DUOPA [Suspect]
     Active Substance: CARBIDOPA\LEVODOPA
     Dosage: EXTRA DOSE: 1.5 ML (RANGE: 1-1.5ML) UP TO 4 TIMES DAILY, FORM STRENGTH- 4.63-20MG
     Route: 050
  3. DUOPA [Suspect]
     Active Substance: CARBIDOPA\LEVODOPA
     Dosage: MORNING DOSE:15 ML
     Route: 050
     Dates: start: 202208

REACTIONS (6)
  - Urosepsis [Unknown]
  - Agitation [Unknown]
  - Hip fracture [Unknown]
  - Fall [Unknown]
  - Hyperkinesia [Unknown]
  - Agitation [Recovered/Resolved]

NARRATIVE: CASE EVENT DATE: 20230101
